FAERS Safety Report 7909676-5 (Version None)
Quarter: 2011Q4

REPORT INFORMATION
  Report Type: 
  Country: None (occurrence: None)
  Receive Date: 20111111
  Receipt Date: 20111108
  Transmission Date: 20120403
  Serious: Yes (Life-Threatening, Hospitalization)
  Sender: FDA-Public Use
  Company Number: MX-GLAXOSMITHKLINE-B0747228A

PATIENT
  Age: 86 Year
  Sex: Female
  Weight: 66.5 kg

DRUGS (8)
  1. PRAMIGEL [Concomitant]
     Route: 065
  2. FENOFIBRATE [Concomitant]
     Route: 065
  3. ASPIRIN [Concomitant]
     Route: 065
  4. CRESTOR [Concomitant]
     Route: 065
  5. PANTOPRAZOLE [Concomitant]
     Route: 065
  6. CLONAZEPAM [Concomitant]
     Route: 065
  7. PROPAFENONE HCL [Suspect]
     Indication: ARRHYTHMIA
     Dosage: 600MG PER DAY
     Route: 048
     Dates: start: 20110813, end: 20110817
  8. LOSARTAN [Concomitant]
     Route: 065

REACTIONS (2)
  - ATRIAL FIBRILLATION [None]
  - VENTRICULAR ARRHYTHMIA [None]
